FAERS Safety Report 6375171-0 (Version None)
Quarter: 2009Q3

REPORT INFORMATION
  Report Type: 
  Country: None (occurrence: None)
  Receive Date: 20090922
  Receipt Date: 20090922
  Transmission Date: 20100115
  Serious: Yes (Life-Threatening, Hospitalization)
  Sender: FDA-Public Use
  Company Number: None

PATIENT
  Age: 46 Year
  Sex: Male
  Weight: 83.4 kg

DRUGS (1)
  1. MELPHALAN 140MG IV 25 AUG.2009 AND STOPPED ON 27 AUG 2009 [Suspect]
     Indication: STEM CELL TRANSPLANT
     Dosage: 140 MG OD IV
     Route: 042
     Dates: start: 20090825, end: 20090827

REACTIONS (7)
  - ABDOMINAL PAIN UPPER [None]
  - ASCITES [None]
  - BLOOD BILIRUBIN INCREASED [None]
  - CORYNEBACTERIUM SEPSIS [None]
  - GENERAL PHYSICAL HEALTH DETERIORATION [None]
  - RENAL IMPAIRMENT [None]
  - VENOOCCLUSIVE DISEASE [None]
